FAERS Safety Report 9866641 (Version 1)
Quarter: 2014Q1

REPORT INFORMATION
  Report Type: Report from Study
  Country: US (occurrence: US)
  Receive Date: 20140204
  Receipt Date: 20140204
  Transmission Date: 20141002
  Serious: Yes (Other)
  Sender: FDA-Public Use
  Company Number: US-ROCHE-1342956

PATIENT
  Sex: Male
  Weight: 50.98 kg

DRUGS (2)
  1. NUTROPIN [Suspect]
     Indication: GROWTH HORMONE DEFICIENCY
     Route: 058
     Dates: start: 2008, end: 20131101
  2. NUTROPIN [Suspect]
     Route: 058
     Dates: start: 20131101

REACTIONS (2)
  - Growth retardation [Unknown]
  - Drug dose omission [Unknown]
